FAERS Safety Report 8213261-8 (Version None)
Quarter: 2012Q1

REPORT INFORMATION
  Report Type: 
  Country: None (occurrence: None)
  Receive Date: 20120315
  Receipt Date: 20120307
  Transmission Date: 20120608
  Serious: Yes (Hospitalization)
  Sender: FDA-Public Use
  Company Number: JP-ABBOTT-11P-087-0859266-00

PATIENT
  Sex: Female
  Weight: 47.2 kg

DRUGS (37)
  1. PROGRAF [Suspect]
     Indication: RHEUMATOID ARTHRITIS
     Dosage: 2 MG DAILY
     Route: 048
     Dates: end: 20100325
  2. PROGRAF [Suspect]
     Dosage: 1 MG DAILY
     Route: 048
     Dates: start: 20100531
  3. ALENDRONATE SODIUM [Concomitant]
     Indication: OSTEOPOROSIS
     Route: 048
  4. CALCIUM L-ASPARTATE HYDRATE [Concomitant]
     Indication: PRODUCT USED FOR UNKNOWN INDICATION
     Dosage: 2 DOSAGE FORMS DAILY
     Route: 048
  5. ALFACALCIDOL [Concomitant]
     Indication: PRODUCT USED FOR UNKNOWN INDICATION
     Dosage: 0.5 MG DAILY
  6. VITAMIN B COMPLEX CAP [Concomitant]
     Indication: PROPHYLAXIS
     Dosage: 3 DOSAGE FORMS DAILY
     Route: 048
  7. ZOLPIDEM TARTRATE [Concomitant]
     Indication: PRODUCT USED FOR UNKNOWN INDICATION
     Dosage: 5 MG DAILY
     Dates: end: 20100214
  8. FUROSEMIDE [Concomitant]
     Indication: PRODUCT USED FOR UNKNOWN INDICATION
     Dosage: 20 MG DAILY
     Dates: start: 20090930, end: 20091026
  9. FERROUS FUMARATE [Concomitant]
     Indication: PRODUCT USED FOR UNKNOWN INDICATION
     Dosage: 305 MG DAILY
     Dates: start: 20091124
  10. LACTATED RINGER'S [Concomitant]
     Dosage: 500 MILLILITER DAILY
     Dates: start: 20100413, end: 20100501
  11. ANTIBIOTICS-RESISTANT LACTIC ACID BACTERIAE [Concomitant]
     Indication: PROPHYLAXIS
     Route: 048
     Dates: start: 20100402, end: 20100406
  12. OMEPRAZOLE SODIUM [Concomitant]
     Indication: PRODUCT USED FOR UNKNOWN INDICATION
     Dosage: 20 MG DAILY PLUS SALINE 20 ML
     Route: 050
     Dates: start: 20100415, end: 20100415
  13. CELECOXIB [Concomitant]
     Dosage: 200 MG DAILY
     Route: 048
     Dates: end: 20100711
  14. REBAMIPIDE [Concomitant]
     Indication: PRODUCT USED FOR UNKNOWN INDICATION
     Dosage: 200 MG DAILY
  15. SODIUM CHLORIDE/POTASSIUM CHLORIDE/L-SODIUM LACTATE/GLUCOSE [Concomitant]
     Dosage: 200 MILLILITER DAILY
     Dates: start: 20100409, end: 20100412
  16. OMEPRAZOLE [Concomitant]
     Indication: ULCER
     Dosage: 20 MG DAILY
     Route: 048
     Dates: end: 20100414
  17. ASPIRIN [Concomitant]
     Indication: LACUNAR INFARCTION
     Route: 048
  18. VITAMIN B COMPLEX CAP [Concomitant]
     Indication: VITAMIN SUPPLEMENTATION
     Dosage: 10 MILLILITER DAILY
     Dates: start: 20100416, end: 20100501
  19. ETIZOLAM [Concomitant]
     Indication: PRODUCT USED FOR UNKNOWN INDICATION
     Dosage: 0.5 MG DAILY
     Route: 048
     Dates: start: 20100215, end: 20100408
  20. OMEPRAZOLE SODIUM [Concomitant]
     Dosage: 40 MG DAILY PLUS SALINE 20 ML
     Route: 050
     Dates: start: 20100416, end: 20100422
  21. OMEPRAZOLE SODIUM [Concomitant]
     Dosage: 20 MG DAILY PLUS SALINE 20 ML
     Route: 050
     Dates: start: 20100423, end: 20100501
  22. HUMIRA [Suspect]
     Indication: RHEUMATOID ARTHRITIS
     Route: 058
     Dates: start: 20090805, end: 20100315
  23. PROGRAF [Suspect]
     Dosage: 2 MG DAILY
     Route: 048
     Dates: start: 20100331, end: 20100408
  24. ZOLPIDEM TARTRATE [Concomitant]
     Dosage: 0.5 MG DAILY
     Route: 048
     Dates: start: 20100409, end: 20100616
  25. FUROSEMIDE [Concomitant]
     Dosage: 10 MG DAILY
     Route: 048
     Dates: start: 20091027, end: 20100501
  26. SODIUM CHLORIDE/POTASSIUM CHLORIDE/L-SODIUM LACTATE/GLUCOSE [Concomitant]
     Dosage: 500 MILLILITER DAILY
     Dates: start: 20100416, end: 20100501
  27. ANTIBIOTICS-RESISTANT LACTIC ACID BACTERIAE [Concomitant]
     Route: 048
     Dates: start: 20100414, end: 20100520
  28. OMEPRAZOLE [Concomitant]
     Indication: PROPHYLAXIS
     Dosage: 20 MG DAILY
     Route: 048
     Dates: start: 20100507
  29. ISONIAZID [Concomitant]
     Indication: ANTIBIOTIC PROPHYLAXIS
     Route: 048
     Dates: end: 20100711
  30. CLARITHROMYCIN [Concomitant]
     Indication: BRONCHIOLITIS
     Route: 048
  31. LACTATED RINGER'S [Concomitant]
     Indication: FLUID REPLACEMENT
     Dosage: 500 MILLILITER DAILY
     Dates: start: 20100326, end: 20100326
  32. SODIUM CHLORIDE/POTASSIUM CHLORIDE/L-SODIUM LACTATE/GLUCOSE [Concomitant]
     Indication: FLUID REPLACEMENT
     Dosage: 500 MILLILITER DAILY
     Dates: start: 20100326, end: 20100401
  33. SODIUM CHLORIDE/L-SODIUM LACTATE/GLUCOSE [Concomitant]
     Dosage: 500 MILLILITER DAILY
     Dates: start: 20100415, end: 20100415
  34. CELECOXIB [Concomitant]
     Indication: RHEUMATOID ARTHRITIS
     Dosage: 400 MG DAILY
     Route: 048
     Dates: end: 20100711
  35. METHYLPREDNISOLONE [Concomitant]
     Indication: RHEUMATOID ARTHRITIS
     Dosage: 2 MG X 1
     Route: 048
  36. LOSARTAN POTASSIUM [Concomitant]
     Indication: PRODUCT USED FOR UNKNOWN INDICATION
     Dosage: 25 MG DAILY
  37. SODIUM CHLORIDE/L-SODIUM LACTATE/GLUCOSE [Concomitant]
     Indication: FLUID REPLACEMENT
     Dosage: 500 MILLILITER DAILY
     Dates: start: 20100409, end: 20100409

REACTIONS (10)
  - BRONCHITIS [None]
  - SPUTUM INCREASED [None]
  - CONSTIPATION [None]
  - RENAL FAILURE [None]
  - SPUTUM PURULENT [None]
  - VOMITING [None]
  - DECREASED APPETITE [None]
  - BLOOD BETA-D-GLUCAN INCREASED [None]
  - DIZZINESS [None]
  - CARDIAC FAILURE [None]
